FAERS Safety Report 7572248-9 (Version None)
Quarter: 2011Q2

REPORT INFORMATION
  Report Type: 
  Country: None (occurrence: None)
  Receive Date: 20110624
  Receipt Date: 20110613
  Transmission Date: 20111010
  Serious: Yes (Other)
  Sender: FDA-Public Use
  Company Number: PHHY2011US14386

PATIENT
  Sex: Female

DRUGS (3)
  1. EXJADE [Suspect]
     Dosage: 1000 MG, DAILY
     Route: 048
  2. EXJADE [Suspect]
     Dosage: 1000 MG SAT AND SUNDAY
     Route: 048
  3. EXJADE [Suspect]
     Dosage: 500 MG, MON TO FRIDAY
     Route: 048

REACTIONS (10)
  - HYPOPHAGIA [None]
  - ALANINE AMINOTRANSFERASE INCREASED [None]
  - BLOOD POTASSIUM DECREASED [None]
  - ASPARTATE AMINOTRANSFERASE INCREASED [None]
  - BLOOD ELECTROLYTES ABNORMAL [None]
  - BLOOD MAGNESIUM INCREASED [None]
  - KIDNEY INFECTION [None]
  - BLOOD PHOSPHORUS DECREASED [None]
  - BLOOD CALCIUM DECREASED [None]
  - BLOOD GLUCOSE INCREASED [None]
